FAERS Safety Report 5531634-9 (Version None)
Quarter: 2007Q4

REPORT INFORMATION
  Report Type: 
  Country: None (occurrence: None)
  Receive Date: 20071115
  Receipt Date: 20071109
  Transmission Date: 20080405
  Serious: Yes (Other)
  Sender: FDA-Public Use
  Company Number: JPI-P-002441

PATIENT
  Age: 54 Year
  Sex: Female
  Weight: 67.1324 kg

DRUGS (4)
  1. XYREM [Suspect]
     Indication: RAPID EYE MOVEMENTS SLEEP ABNORMAL
     Dosage: 4 GM (2 GM, 2 IN 1 D), ORAL; 6 GM (3 GM, 2 IN 1 D), ORAL
     Route: 048
     Dates: start: 20071030, end: 20071101
  2. XYREM [Suspect]
     Indication: RAPID EYE MOVEMENTS SLEEP ABNORMAL
     Dosage: 4 GM (2 GM, 2 IN 1 D), ORAL; 6 GM (3 GM, 2 IN 1 D), ORAL
     Route: 048
     Dates: start: 20071102, end: 20071104
  3. OXYGEN (OXYGEN) [Concomitant]
  4. UNSPECIFIED INCONTINENCE DRUG [Concomitant]

REACTIONS (4)
  - CONVULSION [None]
  - DYSPNOEA [None]
  - HYPOAESTHESIA [None]
  - HYPOKALAEMIA [None]
